FAERS Safety Report 4954475-X (Version None)
Quarter: 2006Q1

REPORT INFORMATION
  Report Type: 
  Country: None (occurrence: None)
  Receive Date: 20060321
  Receipt Date: 20060308
  Transmission Date: 20060701
  Serious: Yes (Disabling)
  Sender: FDA-Public Use
  Company Number: 8015498

PATIENT
  Age: 46 Year

DRUGS (2)
  1. KEPPRA [Suspect]
     Indication: EPILEPSY
     Dosage: 500 MG 2/D PO
     Route: 048
     Dates: start: 20051007, end: 20060209
  2. TOPAMAX [Suspect]
     Indication: EPILEPSY
     Dosage: 300 MG 2/D PO
     Route: 048
     Dates: start: 20001027

REACTIONS (5)
  - AFFECT LABILITY [None]
  - CONFUSIONAL STATE [None]
  - COUGH [None]
  - DRUG INTERACTION [None]
  - DYSPNOEA [None]
